FAERS Safety Report 8451215 (Version 7)
Quarter: 2012Q4

REPORT INFORMATION
  Report Type: 
  Country: US (occurrence: US)
  Receive Date: 20120309
  Receipt Date: 20121022
  Transmission Date: 20130627
  Serious: Yes (Hospitalization, Other)
  Sender: FDA-Public Use
  Company Number: US-009507513-1203USA00877

PATIENT

DRUGS (16)
  1. FOSAMAX [Suspect]
     Indication: OSTEOPOROSIS
     Dosage: 70 mg, QW
     Route: 048
     Dates: start: 20020216, end: 200803
  2. FOSAMAX [Suspect]
     Indication: OSTEOPOROSIS
     Route: 048
     Dates: start: 200803, end: 201007
  3. ALENDRONATE SODIUM [Suspect]
     Indication: OSTEOPOROSIS
     Dosage: 70 mg, UNK
     Dates: start: 20080331, end: 20100421
  4. ALENDRONATE SODIUM [Suspect]
     Indication: OSTEOPOROSIS
     Dosage: 70 mg, UNK
     Dates: start: 20080331, end: 20100421
  5. ASCORBIC ACID [Concomitant]
     Dosage: UNK UNK, qd
  6. CALTRATE [Concomitant]
     Dosage: UNK UNK, bid
  7. IRON (UNSPECIFIED) [Concomitant]
     Dosage: UNK UNK, qd
  8. VITAMIN D (UNSPECIFIED) [Concomitant]
     Dosage: 1000 mg, qd
  9. MK-9278 [Concomitant]
     Dosage: UNK UNK, qd
  10. POTASSIUM (UNSPECIFIED) [Concomitant]
     Dosage: 12-20
  11. FOSAMAX D [Suspect]
     Dosage: 70/5600
     Route: 048
     Dates: start: 20090901
  12. MK-0152 [Concomitant]
     Indication: HYPERTENSION
     Dosage: 25-50
     Route: 048
     Dates: start: 19981221
  13. NORVASC [Concomitant]
     Indication: HYPERTENSION
     Dosage: 5 mg, qd
     Dates: start: 20100415
  14. PRAVACHOL [Concomitant]
     Indication: HYPERLIPIDAEMIA
     Dosage: 20-40
  15. MK-9039 [Concomitant]
  16. RISEDRONATE SODIUM [Suspect]
     Indication: OSTEOPOROSIS

REACTIONS (36)
  - Femur fracture [Unknown]
  - Lip neoplasm malignant stage unspecified [Not Recovered/Not Resolved]
  - Gait disturbance [Unknown]
  - Lip squamous cell carcinoma [Unknown]
  - Skin cancer [Unknown]
  - Arthralgia [Unknown]
  - Weight increased [Unknown]
  - Leukocytosis [Unknown]
  - Low turnover osteopathy [Unknown]
  - Tooth disorder [Unknown]
  - Breast fibrosis [Unknown]
  - Cellulitis [Unknown]
  - Body height decreased [Unknown]
  - Osteopenia [Not Recovered/Not Resolved]
  - Haemorrhoids [Unknown]
  - Hiatus hernia [Unknown]
  - Urinary incontinence [Unknown]
  - Anaemia postoperative [Unknown]
  - Liver function test abnormal [Recovering/Resolving]
  - Blood alkaline phosphatase increased [Unknown]
  - Hyperchromic anaemia [Unknown]
  - Osteoarthritis [Unknown]
  - Cataract [Unknown]
  - Cardiac murmur [Unknown]
  - Urinary tract infection [Unknown]
  - Blood pressure decreased [Unknown]
  - Tinea infection [Unknown]
  - Skin disorder [Unknown]
  - Insomnia [Unknown]
  - Ecchymosis [Unknown]
  - Hypertension [Unknown]
  - Excoriation [Unknown]
  - Oedema peripheral [Unknown]
  - Gastrooesophageal reflux disease [Not Recovered/Not Resolved]
  - Constipation [Unknown]
  - Gastritis [Unknown]
